FAERS Safety Report 18211302 (Version 1)
Quarter: 2020Q3

REPORT INFORMATION
  Report Type: Spontaneous
  Country: FR (occurrence: FR)
  Receive Date: 20200831
  Receipt Date: 20200831
  Transmission Date: 20201103
  Serious: Yes (Other)
  Sender: FDA-Public Use
  Company Number: FR-BEH-2020121624

PATIENT
  Age: 67 Year
  Sex: Male
  Weight: 57.5 kg

DRUGS (15)
  1. ELIQUIS [Concomitant]
     Active Substance: APIXABAN
     Route: 065
  2. PRIVIGEN [Suspect]
     Active Substance: HUMAN IMMUNOGLOBULIN G
     Indication: IMMUNE THROMBOCYTOPENIA
     Dosage: 60 GRAM, TOT
     Route: 041
     Dates: start: 20200725, end: 20200725
  3. DIFFU K [Concomitant]
     Active Substance: POTASSIUM CHLORIDE
     Route: 065
  4. RAMIPRIL. [Concomitant]
     Active Substance: RAMIPRIL
     Route: 065
  5. BISOPROLOL [Concomitant]
     Active Substance: BISOPROLOL
     Route: 065
  6. BACTRIM [Concomitant]
     Active Substance: SULFAMETHOXAZOLE\TRIMETHOPRIM
     Route: 065
  7. LEVOFLOXACINE [LEVOFLOXACIN] [Concomitant]
     Active Substance: LEVOFLOXACIN
     Route: 065
  8. FUROSEMIDE. [Concomitant]
     Active Substance: FUROSEMIDE
     Route: 065
  9. CEFTAZIDIME. [Concomitant]
     Active Substance: CEFTAZIDIME
     Route: 065
  10. ENOXAPARINE SODIQUE [Concomitant]
     Active Substance: ENOXAPARIN SODIUM
     Route: 065
  11. KARDEGIC [Concomitant]
     Active Substance: ASPIRIN DL-LYSINE
     Route: 065
  12. ISENTRESS [Concomitant]
     Active Substance: RALTEGRAVIR POTASSIUM
     Route: 065
  13. PRIVIGEN [Suspect]
     Active Substance: HUMAN IMMUNOGLOBULIN G
     Dosage: 60 GRAM, TOT
     Route: 041
     Dates: start: 20200725, end: 20200725
  14. SPIRONOLACTONE. [Concomitant]
     Active Substance: SPIRONOLACTONE
     Route: 065
  15. INTELENCE [Concomitant]
     Active Substance: ETRAVIRINE
     Route: 065

REACTIONS (3)
  - Malaise [Recovered/Resolved]
  - Pyrexia [Recovered/Resolved]
  - Respiratory distress [Recovered/Resolved]

NARRATIVE: CASE EVENT DATE: 20200725
